FAERS Safety Report 16077077 (Version 1)
Quarter: 2019Q2

REPORT INFORMATION
  Report Type: Spontaneous
  Country: US (occurrence: US)
  Receive Date: 20190314
  Receipt Date: 20190314
  Transmission Date: 20190711
  Serious: Yes (Hospitalization, Disabling)
  Sender: FDA-Public Use
  Company Number: None

PATIENT
  Age: 65 Year
  Sex: Male
  Weight: 72 kg

DRUGS (3)
  1. HARVONI [Suspect]
     Active Substance: LEDIPASVIR\SOFOSBUVIR
     Indication: HEPATITIS C
     Dosage: ?          QUANTITY:2 CAPSULE(S);?
     Route: 048
  2. PANTAPRAZOLE [Concomitant]
     Active Substance: PANTOPRAZOLE SODIUM
  3. ADVIL [Concomitant]
     Active Substance: IBUPROFEN

REACTIONS (4)
  - Fatigue [None]
  - Decreased appetite [None]
  - Vomiting [None]
  - Gait disturbance [None]

NARRATIVE: CASE EVENT DATE: 20170725
